FAERS Safety Report 10658394 (Version 1)
Quarter: 2014Q4

REPORT INFORMATION
  Report Type: Spontaneous
  Country: FR (occurrence: FR)
  Receive Date: 20141217
  Receipt Date: 20141217
  Transmission Date: 20150529
  Serious: Yes (Hospitalization, Other)
  Sender: FDA-Public Use
  Company Number: FR-ASTRAZENECA-2014SE96031

PATIENT
  Age: 42 Year
  Sex: Female

DRUGS (10)
  1. ZAMUDOLORO [Concomitant]
     Dosage: ONE TABLET AT 8:00, ONE TABLET AT 12:00 AND ONE TABLET AT 20:00
     Route: 048
     Dates: start: 20141108, end: 20141109
  2. URBANYL [Concomitant]
     Active Substance: CLOBAZAM
     Indication: EPILEPSY
     Route: 048
     Dates: start: 20141108, end: 20141111
  3. DIPIPERON [Concomitant]
     Active Substance: PIPAMPERONE
  4. ZAMUDOLORO [Concomitant]
     Dosage: ONE TABLET IN THE MORNING
     Route: 048
     Dates: start: 20141110
  5. XEROQUEL [Suspect]
     Active Substance: QUETIAPINE FUMARATE
     Dosage: ONE TABLET OF XEROQUEL 50 MG IN THE MORNING
     Route: 048
     Dates: start: 20141110, end: 20141110
  6. XEROQUEL [Suspect]
     Active Substance: QUETIAPINE FUMARATE
     Dosage: TWO TABLETS PER DAY OF XEROQUEL 50 MG AND ONE TABLET PER DAY OF XEROQUEL 300 MG
     Route: 048
     Dates: start: 20141109
  7. KEPPRA [Concomitant]
     Active Substance: LEVETIRACETAM
     Dosage: 500 MG 1.5 DF EVERY MORNING AND EVERY EVENING
     Dates: start: 20141108, end: 20141112
  8. XEROQUEL [Suspect]
     Active Substance: QUETIAPINE FUMARATE
     Route: 048
     Dates: start: 2012
  9. XEROQUEL [Suspect]
     Active Substance: QUETIAPINE FUMARATE
     Dosage: TWO TABLETS PER DAY OF XEROQUEL 50 MG AND ONE TABLET PER DAY OF XEROQUEL 300 MG
     Route: 048
     Dates: start: 20141108
  10. LOVENOX [Concomitant]
     Active Substance: ENOXAPARIN SODIUM
     Dosage: 4000IU/0.4ML ONE SYRINGE
     Route: 058
     Dates: start: 20141108, end: 20141111

REACTIONS (22)
  - Septic encephalopathy [Unknown]
  - Status epilepticus [Recovered/Resolved]
  - Pulmonary congestion [Unknown]
  - Somnolence [Unknown]
  - Fungal infection [Unknown]
  - Laryngeal dyspnoea [Unknown]
  - Off label use [Recovered/Resolved]
  - Hyperthermia [Recovered/Resolved]
  - Disorientation [Unknown]
  - Hypertonia [Unknown]
  - Anxiety [Unknown]
  - Septic shock [Unknown]
  - Escherichia urinary tract infection [Unknown]
  - Cough [Unknown]
  - Hallucination [Unknown]
  - Depressed level of consciousness [Unknown]
  - Agitation [Unknown]
  - Petechiae [Unknown]
  - Genital infection bacterial [Unknown]
  - Insomnia [Unknown]
  - Erythema [Unknown]
  - Confusional state [Unknown]

NARRATIVE: CASE EVENT DATE: 2014
